FAERS Safety Report 5302956-1 (Version None)
Quarter: 2007Q2

REPORT INFORMATION
  Report Type: 
  Country: None (occurrence: None)
  Receive Date: 20070417
  Receipt Date: 20070417
  Transmission Date: 20071010
  Serious: Yes (Life-Threatening)
  Sender: FDA-Public Use
  Company Number: None

PATIENT
  Sex: Female
  Weight: 102.5129 kg

DRUGS (9)
  1. FOSPHENYTOIN [Suspect]
     Indication: STATUS EPILEPTICUS
     Dosage: 1000MG LOADING DOSE IV BOLUS
     Route: 040
     Dates: start: 20070407, end: 20070407
  2. LEXAPRO [Concomitant]
  3. SYNTHROID [Concomitant]
  4. LAMICTAL [Concomitant]
  5. INDERAL [Concomitant]
  6. TOPAMAX [Concomitant]
  7. VALIUM [Concomitant]
  8. OXYCODONE HCL [Concomitant]
  9. TYLENOL [Concomitant]

REACTIONS (2)
  - BRADYCARDIA [None]
  - VENTRICULAR TACHYCARDIA [None]
